FAERS Safety Report 9843910 (Version 1)
Quarter: 2013Q4

REPORT INFORMATION
  Report Type: Spontaneous
  Country: US (occurrence: None)
  Receive Date: 20131223
  Receipt Date: 20131223
  Transmission Date: 20140711
  Serious: Yes (Other)
  Sender: FDA-Public Use
  Company Number: 1000049110

PATIENT
  Age: 42 Year
  Sex: Female

DRUGS (17)
  1. LINZESS (LINACLOTIDE)(145 MICROGRAM, CAPSULES) [Suspect]
     Indication: CONSTIPATION
     Route: 048
     Dates: start: 20130918
  2. AMITIZA (LUBIPROSTONE)(24 MICROGRAM) (LUBIPROSTONE) [Concomitant]
  3. METFORMIN (METFORMIN) (METFORMIN) [Concomitant]
  4. GLIPIZIDE ( GLIPIZIDE)(LIPIZIDE) [Concomitant]
  5. LIPITOR (ATORVASTATIN CALCIUM) (ATORVASTATIN CALCIUM) [Concomitant]
  6. MECLIZINE (MECLIZINE) (MECLIZINE) [Concomitant]
  7. REQUIP (ROPINIROLE HYDROCHLORIDE) (ROPINIROLE HYDROCHLORIDE) [Concomitant]
  8. FLOVENT (FLUTICASONE PROPIONATE) (FLUTICASONE PROPIONATE) [Concomitant]
  9. VENTLIN (ALBUTEROL SULFATE) (ALBUTEROL SULFATE) [Concomitant]
  10. ALBUTEROL (ALBUTEROL) (ALBUTEROL) [Concomitant]
  11. ZOLOFT (SERTRALINE HYDROCHLORIDE)(SERTRALINE HYDROCHLORIDE) [Concomitant]
  12. XANAX [Concomitant]
  13. SEROQUEL (QUETIAPINE FUMARATE) (QUETIAPINE FUMARATE) [Concomitant]
  14. REMERON (MIRTAZAPINE)(MIRTAZAPINE) [Concomitant]
  15. PROTONIX (PANTOPRAZOLE SODIUM SEQUIHYDRATE) (PANTOPRAZOLE SODIUM SEQUIHYDRATE) [Concomitant]
  16. ASPIRIN (ACETYLSALICYLIC ACID ) (ACETYLSALICYLIC ACID) [Concomitant]
  17. BENADRYL (DIPHENHYDRAMINE) (DIPHENHYDRAMINE) [Concomitant]

REACTIONS (2)
  - Abdominal pain [None]
  - Faecal incontinence [None]
